FAERS Safety Report 4827858-6 (Version None)
Quarter: 2005Q4

REPORT INFORMATION
  Report Type: 
  Country: None (occurrence: None)
  Receive Date: 20051114
  Receipt Date: 20051114
  Transmission Date: 20060501
  Serious: Yes (Life-Threatening)
  Sender: FDA-Public Use
  Company Number: None

PATIENT
  Sex: Male

DRUGS (1)
  1. SPIRONOLACTONE [Suspect]
     Indication: HYPERTENSION
     Dosage: 100 MG  Q12H   PO
     Route: 048
     Dates: start: 20050901, end: 20050928

REACTIONS (1)
  - HYPERKALAEMIA [None]
